FAERS Safety Report 9888253 (Version 2)
Quarter: 2014Q3

REPORT INFORMATION
  Report Type: Spontaneous
  Country: IT (occurrence: IT)
  Receive Date: 20140211
  Receipt Date: 20140718
  Transmission Date: 20150326
  Serious: Yes (Hospitalization)
  Sender: FDA-Public Use
  Company Number: IT-SA-2014SA013614

PATIENT
  Age: 86 Year
  Sex: Female

DRUGS (1)
  1. LASIX [Suspect]
     Active Substance: FUROSEMIDE
     Indication: CARDIAC FAILURE
     Route: 048
     Dates: start: 20130501, end: 20131130

REACTIONS (2)
  - Condition aggravated [Recovering/Resolving]
  - Renal failure acute [Recovering/Resolving]

NARRATIVE: CASE EVENT DATE: 20131130
